FAERS Safety Report 4635133-8 (Version None)
Quarter: 2005Q2

REPORT INFORMATION
  Report Type: 
  Country: None (occurrence: None)
  Receive Date: 20050414
  Receipt Date: 20050404
  Transmission Date: 20051028
  Serious: Yes (Other)
  Sender: FDA-Public Use
  Company Number: PT-GLAXOSMITHKLINE-B0377340A

PATIENT
  Age: 75 Year
  Sex: Female
  Weight: 56 kg

DRUGS (3)
  1. ANTIGRIPPINE (PPA) [Suspect]
     Indication: INFLUENZA
     Dosage: 4TABS CUMULATIVE DOSE
     Route: 048
     Dates: start: 20050221
  2. DIAZEPAM [Concomitant]
     Indication: ANXIETY
     Route: 048
  3. AZINTAMIDE [Concomitant]
     Indication: CHOLESTASIS
     Route: 048

REACTIONS (3)
  - DIARRHOEA [None]
  - DIZZINESS [None]
  - NAUSEA [None]
